FAERS Safety Report 5324436-X (Version None)
Quarter: 2007Q2

REPORT INFORMATION
  Report Type: 
  Country: None (occurrence: None)
  Receive Date: 20070508
  Receipt Date: 20070425
  Transmission Date: 20071010
  Serious: Yes (Life-Threatening)
  Sender: FDA-Public Use
  Company Number: 2007P1000187

PATIENT
  Age: 60 Year
  Sex: Male

DRUGS (5)
  1. BUSULFAN (BUSULFAN) [Suspect]
     Indication: STEM CELL TRANSPLANT
     Dosage: IV
     Route: 042
     Dates: start: 20070221
  2. CYTARABINE [Concomitant]
  3. VALPROATE SODIUM [Concomitant]
  4. FILGRASTIM [Concomitant]
  5. ETOPOSIDE [Concomitant]

REACTIONS (5)
  - BLOOD BILIRUBIN INCREASED [None]
  - BLOOD GLUCOSE INCREASED [None]
  - MOUTH HAEMORRHAGE [None]
  - STAPHYLOCOCCAL SEPSIS [None]
  - STOMATITIS [None]
